FAERS Safety Report 5392200-1 (Version None)
Quarter: 2007Q3

REPORT INFORMATION
  Report Type: 
  Country: None (occurrence: None)
  Receive Date: 20070717
  Receipt Date: 20070717
  Transmission Date: 20080115
  Serious: Yes (Other)
  Sender: FDA-Public Use
  Company Number: None

PATIENT
  Age: 36 Year
  Sex: Female
  Weight: 90.7194 kg

DRUGS (1)
  1. RISPERIDAL  2 MGS [Suspect]
     Indication: BIPOLAR DISORDER
     Dosage: 2MGS  1 TAB AT BEDTIME PO
     Route: 048
     Dates: start: 20070622, end: 20070716

REACTIONS (4)
  - GALACTORRHOEA [None]
  - MENSTRUAL DISORDER [None]
  - METRORRHAGIA [None]
  - MOOD SWINGS [None]
